FAERS Safety Report 25175565 (Version 2)
Quarter: 2025Q2

REPORT INFORMATION
  Report Type: Report from Study
  Country: CO (occurrence: CO)
  Receive Date: 20250408
  Receipt Date: 20250514
  Transmission Date: 20250716
  Serious: Yes (Hospitalization)
  Sender: EISAI
  Company Number: CO-Eisai-EC-2025-186298

PATIENT
  Age: 70 Year
  Sex: Male
  Weight: 65.00 kg

DRUGS (2)
  1. LENVIMA [Suspect]
     Active Substance: LENVATINIB
     Indication: Thyroid cancer
     Dates: start: 20250219, end: 20250309
  2. LENVIMA [Suspect]
     Active Substance: LENVATINIB
     Dates: start: 20250321, end: 20250422

REACTIONS (7)
  - Wound [Recovering/Resolving]
  - Fatigue [Not Recovered/Not Resolved]
  - Somnolence [Not Recovered/Not Resolved]
  - Syncope [Recovered/Resolved]
  - Hypertension [Not Recovered/Not Resolved]
  - Feeding disorder [Not Recovered/Not Resolved]
  - Incontinence [Not Recovered/Not Resolved]

NARRATIVE: CASE EVENT DATE: 20250101
